FAERS Safety Report 8841701 (Version 4)
Quarter: 2012Q4

REPORT INFORMATION
  Report Type: Spontaneous
  Country: US (occurrence: None)
  Receive Date: 20121011
  Receipt Date: 20121120
  Transmission Date: 20130627
  Serious: Yes (Death)
  Sender: FDA-Public Use
  Company Number: ADR-2012-01849

PATIENT
  Age: 42 Year
  Sex: Male

DRUGS (2)
  1. LIORESAL [Suspect]
     Indication: SPASTICITY
  2. LIORESAL [Suspect]

REACTIONS (4)
  - Multiple sclerosis [None]
  - Disease complication [None]
  - Device breakage [None]
  - Device alarm issue [None]
